FAERS Safety Report 17291917 (Version 1)
Quarter: 2020Q1

REPORT INFORMATION
  Report Type: Spontaneous
  Country: CN (occurrence: CN)
  Receive Date: 20200121
  Receipt Date: 20200121
  Transmission Date: 20200409
  Serious: Yes (Other)
  Sender: FDA-Public Use
  Company Number: CN-BAYER-2019-220909

PATIENT
  Age: 75 Year
  Sex: Female

DRUGS (1)
  1. IOPROMIDE. [Suspect]
     Active Substance: IOPROMIDE
     Indication: MAGNETIC RESONANCE IMAGING
     Dosage: 90 ML, ONCE
     Route: 042
     Dates: start: 20191119, end: 20191119

REACTIONS (6)
  - Vomiting [Recovering/Resolving]
  - Chest discomfort [Recovering/Resolving]
  - Cough [Recovering/Resolving]
  - Syncope [Recovering/Resolving]
  - Night sweats [Recovering/Resolving]
  - Asthenia [Recovering/Resolving]

NARRATIVE: CASE EVENT DATE: 20191119
